FAERS Safety Report 26187963 (Version 1)
Quarter: 2025Q4

REPORT INFORMATION
  Report Type: Spontaneous
  Country: EU (occurrence: EU)
  Receive Date: 20251222
  Receipt Date: 20251222
  Transmission Date: 20260118
  Serious: Yes (Hospitalization)
  Sender: TEVA
  Company Number: EU-TEVA-VS-3405299

PATIENT
  Age: 26 Year
  Sex: Male

DRUGS (3)
  1. SERTRALINE [Interacting]
     Active Substance: SERTRALINE HYDROCHLORIDE
     Indication: Sleep disorder
     Dosage: PER NIGHT FOR MORE THAN 20 MONTHS
     Route: 065
  2. TIRZEPATIDE [Interacting]
     Active Substance: TIRZEPATIDE
     Indication: Obesity
     Route: 065
  3. QUETIAPINE [Interacting]
     Active Substance: QUETIAPINE
     Indication: Sleep disorder
     Dosage: PER NIGHT FOR MORE THAN 20 MONTHS
     Route: 065

REACTIONS (2)
  - Pancreatitis acute [Recovered/Resolved]
  - Drug interaction [Unknown]
